FAERS Safety Report 4907766-2 (Version None)
Quarter: 2006Q1

REPORT INFORMATION
  Report Type: 
  Country: None (occurrence: None)
  Receive Date: 20060208
  Receipt Date: 20060208
  Transmission Date: 20060701
  Serious: Yes (Hospitalization)
  Sender: FDA-Public Use
  Company Number: None

PATIENT
  Age: 76 Year
  Sex: Male

DRUGS (9)
  1. CLOPIDOGREL [Suspect]
     Indication: ANTICOAGULANT THERAPY
     Dosage: 75MG QD
     Dates: start: 19990801
  2. ASPIRIN [Suspect]
     Indication: CARDIAC DISORDER
     Dosage: 81MG QD
     Dates: start: 19950401
  3. RANITIDINE [Concomitant]
  4. NIFEDIPINE [Concomitant]
  5. ZOCOR [Concomitant]
  6. FOSINOPRIL SODIUM [Concomitant]
  7. FES04 [Concomitant]
  8. NTC [Concomitant]
  9. OMEPRAZOLE [Concomitant]

REACTIONS (1)
  - GASTROINTESTINAL HAEMORRHAGE [None]
